FAERS Safety Report 9824862 (Version 1)
Quarter: 2014Q1

REPORT INFORMATION
  Report Type: Spontaneous
  Country: GB (occurrence: GB)
  Receive Date: 20140117
  Receipt Date: 20140117
  Transmission Date: 20141002
  Serious: Yes (Hospitalization)
  Sender: FDA-Public Use
  Company Number: GB-ROCHE-1334286

PATIENT
  Age: 77 Year
  Sex: Female
  Weight: 59.1 kg

DRUGS (8)
  1. CLONAZEPAM [Suspect]
     Indication: BIPOLAR DISORDER
     Route: 048
     Dates: start: 20130501, end: 20131104
  2. BUMETANIDE [Concomitant]
  3. FERROUS SULPHATE [Concomitant]
  4. LAMOTRIGINE [Concomitant]
  5. LORAZEPAM [Concomitant]
  6. OLANZAPINE [Concomitant]
  7. OMEPRAZOLE [Concomitant]
  8. THYROXINE [Concomitant]

REACTIONS (1)
  - Hypothermia [Recovered/Resolved]
